FAERS Safety Report 9754406 (Version 3)
Quarter: 2014Q2

REPORT INFORMATION
  Report Type: Spontaneous
  Country: US (occurrence: US)
  Receive Date: 20131213
  Receipt Date: 20140430
  Transmission Date: 20141212
  Serious: Yes (Hospitalization)
  Sender: FDA-Public Use
  Company Number: US-GLAXOSMITHKLINE-A1052474A

PATIENT
  Age: 49 Year
  Sex: Female

DRUGS (8)
  1. BENLYSTA [Suspect]
     Indication: SYSTEMIC LUPUS ERYTHEMATOSUS
     Dosage: 1APP MONTHLY
     Route: 042
     Dates: start: 201206
  2. PRILOSEC [Concomitant]
  3. SERTRALINE [Concomitant]
  4. PLAQUENIL [Concomitant]
  5. METOPROLOL [Concomitant]
  6. SYNTHROID [Concomitant]
  7. BACLOFEN [Concomitant]
  8. KLONOPIN [Concomitant]

REACTIONS (8)
  - Aspergillus infection [Recovered/Resolved]
  - Sinusitis bacterial [Recovered/Resolved]
  - Sinusitis fungal [Recovered/Resolved]
  - Migraine [Recovering/Resolving]
  - Headache [Recovering/Resolving]
  - Depressed mood [Unknown]
  - Decreased activity [Unknown]
  - Decreased appetite [Unknown]
